FAERS Safety Report 5936350-7 (Version None)
Quarter: 2008Q4

REPORT INFORMATION
  Report Type: 
  Country: None (occurrence: None)
  Receive Date: 20081029
  Receipt Date: 20081029
  Transmission Date: 20090506
  Serious: No
  Sender: FDA-Public Use
  Company Number: None

PATIENT
  Age: 66 Year
  Sex: Female
  Weight: 68.0396 kg

DRUGS (2)
  1. LEVAQUIN [Suspect]
     Indication: COUGH
     Dosage: 500 MG ONCE DAILY PO
     Route: 048
     Dates: start: 20080930, end: 20081004
  2. LEVAQUIN [Suspect]
     Indication: SINUSITIS
     Dosage: 500 MG ONCE DAILY PO
     Route: 048
     Dates: start: 20080930, end: 20081004

REACTIONS (8)
  - FALL [None]
  - GAIT DISTURBANCE [None]
  - JOINT SWELLING [None]
  - LOSS OF CONTROL OF LEGS [None]
  - MYALGIA [None]
  - OEDEMA PERIPHERAL [None]
  - PAIN IN EXTREMITY [None]
  - TENDERNESS [None]
